FAERS Safety Report 9294372 (Version 1)
Quarter: 2013Q1

REPORT INFORMATION
  Report Type: Spontaneous
  Country: US (occurrence: None)
  Receive Date: 20121227
  Receipt Date: 20121227
  Transmission Date: 20140127
  Serious: Yes (Hospitalization, Disabling)
  Sender: FDA-Public Use
  Company Number: PHEH2011US010725

PATIENT
  Age: 52 Year
  Sex: Male
  Weight: 86.46 kg

DRUGS (7)
  1. EXJADE [Suspect]
     Indication: SICKLE CELL ANAEMIA
     Route: 048
     Dates: start: 20121012
  2. FOLIC ACID (FOLIC ACID) [Concomitant]
  3. HYDROXYUREA (HYDROXYCARBAMIDE) [Concomitant]
  4. METHADONE (METHADONE) [Concomitant]
  5. LASIX (FUROSEMIDE) [Concomitant]
  6. FOSINOPRIL (FOSINOPRIL) [Concomitant]
  7. FLUOXETINE (FLUOXETINE) [Concomitant]

REACTIONS (4)
  - Sickle cell anaemia with crisis [None]
  - Myalgia [None]
  - Pain [None]
  - Bone pain [None]
